FAERS Safety Report 9610503 (Version 2)
Quarter: 2013Q4

REPORT INFORMATION
  Report Type: Spontaneous
  Country: US (occurrence: US)
  Receive Date: 20131009
  Receipt Date: 20131009
  Transmission Date: 20140711
  Serious: No
  Sender: FDA-Public Use
  Company Number: US-PURDUE-USA-2012-0096157

PATIENT
  Sex: Female

DRUGS (3)
  1. BUTRANS [Suspect]
     Indication: BACK PAIN
     Dosage: 20 MCG, 1/WEEK
     Route: 062
     Dates: end: 20121116
  2. BUTRANS [Suspect]
     Indication: FIBROMYALGIA
  3. VICODIN [Concomitant]
     Indication: BREAKTHROUGH PAIN
     Dosage: 1 TABLET, PRN
     Route: 048

REACTIONS (5)
  - Application site burn [Not Recovered/Not Resolved]
  - Application site pain [Not Recovered/Not Resolved]
  - Application site pruritus [Not Recovered/Not Resolved]
  - Application site vesicles [Unknown]
  - Application site rash [Recovered/Resolved]
